FAERS Safety Report 15534822 (Version 2)
Quarter: 2019Q1

REPORT INFORMATION
  Report Type: Spontaneous
  Country: US (occurrence: US)
  Receive Date: 20181022
  Receipt Date: 20190327
  Transmission Date: 20190417
  Serious: Yes (Other)
  Sender: FDA-Public Use
  Company Number: US-TEVA-2018-US-965371

PATIENT
  Age: 36 Year
  Sex: Female

DRUGS (1)
  1. AJOVY [Suspect]
     Active Substance: FREMANEZUMAB-VFRM
     Dosage: 1 INJECTION PER ADMINISTRATION

REACTIONS (4)
  - Underdose [Unknown]
  - Tinnitus [Recovered/Resolved]
  - Loss of consciousness [Unknown]
  - Tunnel vision [Recovered/Resolved]

NARRATIVE: CASE EVENT DATE: 20181013
